FAERS Safety Report 21204495 (Version 1)
Quarter: 2022Q3

REPORT INFORMATION
  Report Type: Spontaneous
  Country: FR (occurrence: FR)
  Receive Date: 20220812
  Receipt Date: 20220812
  Transmission Date: 20221027
  Serious: Yes (Hospitalization)
  Sender: FDA-Public Use
  Company Number: None

PATIENT
  Age: 87 Year
  Sex: Female

DRUGS (6)
  1. ALPRAZOLAM [Suspect]
     Active Substance: ALPRAZOLAM
     Indication: Product used for unknown indication
     Dosage: .75 MILLIGRAM DAILY; 0.25MG : 1-1-1.,THERAPY START DATE : NASK
     Dates: end: 20220120
  2. MIANSERIN HYDROCHLORIDE [Suspect]
     Active Substance: MIANSERIN HYDROCHLORIDE
     Indication: Product used for unknown indication
     Dosage: 10 MILLIGRAM DAILY; 10MG : 0-0-1. , CHLORHYDRATE DE MIANSERINE
  3. IMOVANE [Suspect]
     Active Substance: ZOPICLONE
     Indication: Product used for unknown indication
     Dosage: UNIT DOSE : 3.75 MG ,FREQUENCY TIME : 1 DAY,  THERAPY START DATE : NASK
     Dates: end: 20220120
  4. LOXAPINE [Suspect]
     Active Substance: LOXAPINE
     Indication: Product used for unknown indication
     Dosage: 25UG: 5 DROPS MORNING, NOON AND EVENING , THERAPY START DATE : NASK
     Dates: end: 20220120
  5. RISPERDAL [Suspect]
     Active Substance: RISPERIDONE
     Indication: Product used for unknown indication
     Dosage: 1 DOSAGE FORMS DAILY; 1MG : 1/2-0-1/2
  6. PIPAMPERONE [Suspect]
     Active Substance: PIPAMPERONE
     Indication: Product used for unknown indication
     Dosage: 40MG/ML , THERAPY START DATE : NASK
     Dates: end: 20220120

REACTIONS (1)
  - Disturbance in attention [Recovered/Resolved]
